FAERS Safety Report 9009189 (Version 1)
Quarter: 2013Q1

REPORT INFORMATION
  Report Type: Spontaneous
  Country: FR (occurrence: FR)
  Receive Date: 20130111
  Receipt Date: 20130111
  Transmission Date: 20140127
  Serious: Yes (Hospitalization, Other)
  Sender: FDA-Public Use
  Company Number: FR-ELI_LILLY_AND_COMPANY-FR201301000555

PATIENT
  Sex: Female

DRUGS (2)
  1. PROZAC [Suspect]
     Indication: DEPRESSION
     Dosage: UNK, UNKNOWN
     Route: 048
  2. TRAMADOL [Concomitant]
     Indication: PAIN

REACTIONS (5)
  - Syncope [Recovered/Resolved]
  - Orthostatic hypotension [Unknown]
  - Hyperhidrosis [Recovered/Resolved]
  - Potentiating drug interaction [Unknown]
  - Headache [Recovered/Resolved]
